FAERS Safety Report 7683887-9 (Version None)
Quarter: 2011Q3

REPORT INFORMATION
  Report Type: 
  Country: None (occurrence: None)
  Receive Date: 20110815
  Receipt Date: 20110810
  Transmission Date: 20111222
  Serious: Yes (Hospitalization, Other)
  Sender: FDA-Public Use
  Company Number: IE-AMGEN-IRLSP2011035988

PATIENT
  Sex: Male

DRUGS (7)
  1. NEULASTA [Suspect]
     Indication: CHEMOTHERAPY
     Dosage: 6 MG, 3 TIMES/WK
     Route: 058
     Dates: start: 20110310, end: 20110601
  2. ANTINEOPLASTIC AGENTS [Concomitant]
     Dosage: UNK
  3. RAMIPRIL [Concomitant]
  4. EZETIMIBE [Concomitant]
  5. NU-SEALS ASPIRIN [Concomitant]
  6. GERTAC [Concomitant]
  7. LERCANIDIPINE [Concomitant]

REACTIONS (1)
  - SMALL CELL LUNG CANCER EXTENSIVE STAGE [None]
